FAERS Safety Report 24881827 (Version 9)
Quarter: 2025Q2

REPORT INFORMATION
  Report Type: Report from Study
  Country: US (occurrence: US)
  Receive Date: 20250124
  Receipt Date: 20250624
  Transmission Date: 20250717
  Serious: Yes (Other)
  Sender: TAKEDA
  Company Number: US-TAKEDA-2024TUS064106

PATIENT
  Age: 35 Year
  Sex: Female
  Weight: 159 kg

DRUGS (6)
  1. LANADELUMAB [Suspect]
     Active Substance: LANADELUMAB
     Indication: Immune system disorder
     Dosage: 300 MILLIGRAM, Q2WEEKS
     Dates: start: 202405
  2. LANADELUMAB [Suspect]
     Active Substance: LANADELUMAB
  3. LANADELUMAB [Suspect]
     Active Substance: LANADELUMAB
  4. LEXAPRO [Suspect]
     Active Substance: ESCITALOPRAM OXALATE
     Indication: Product used for unknown indication
  5. ICATIBANT ACETATE [Concomitant]
     Active Substance: ICATIBANT ACETATE
  6. DANAZOL [Concomitant]
     Active Substance: DANAZOL
     Dosage: UNK UNK, BID

REACTIONS (13)
  - Pneumonia [Unknown]
  - Hereditary angioedema [Recovered/Resolved]
  - Weight decreased [Unknown]
  - Illness [Unknown]
  - Fatigue [Unknown]
  - Weight increased [Unknown]
  - Bronchitis [Unknown]
  - Back pain [Unknown]
  - Ligament sprain [Unknown]
  - Fall [Unknown]
  - Joint injury [Unknown]
  - Limb injury [Unknown]
  - Multiple allergies [Unknown]

NARRATIVE: CASE EVENT DATE: 20240531
